FAERS Safety Report 8061812-9 (Version None)
Quarter: 2012Q1

REPORT INFORMATION
  Report Type: 
  Country: None (occurrence: None)
  Receive Date: 20120123
  Receipt Date: 20120111
  Transmission Date: 20120608
  Serious: Yes (Other)
  Sender: FDA-Public Use
  Company Number: US-PAR PHARMACEUTICAL, INC-2011SCPR003490

PATIENT

DRUGS (18)
  1. ETOPOSIDE [Concomitant]
     Dosage: 50 MG/M2, 21 DAYS ON/ 7 DAYS OFF
     Route: 048
  2. IMATINIB MESYLATE [Suspect]
     Indication: GLIOBLASTOMA
     Dosage: 300 MG, QD
     Route: 048
  3. BEVACIZUMAB [Concomitant]
     Indication: GLIOBLASTOMA
     Dosage: 10 MG/KG, EVERY 2 WEEKS
  4. BEVACIZUMAB [Concomitant]
     Dosage: 7.5 MG/KG, EVERY 2 WEEKS
     Route: 065
  5. TEMOZOLOMIDE [Concomitant]
     Indication: GLIOBLASTOMA
     Dosage: 21-DAY DOSAGE (OF A 28-DAY CYCLE) OF 100 MG/M2
     Route: 065
  6. DEXAMETHASONE [Concomitant]
     Indication: LETHARGY
     Dosage: UNK, UNKNOWN
     Route: 065
  7. HYDROXYUREA [Suspect]
     Indication: GLIOBLASTOMA
     Dosage: 500 MG, QD
     Route: 048
  8. TEMOZOLOMIDE [Concomitant]
     Dosage: 50 MG/M2, / DAY
     Route: 048
  9. DACLIZUMAB [Concomitant]
     Indication: PRODUCT USED FOR UNKNOWN INDICATION
     Dosage: UNK, UNKNOWN
     Route: 065
  10. DEXAMETHASONE [Concomitant]
     Indication: APHASIA
  11. SODIUM NITROPRUSSIDE [Concomitant]
     Indication: BLOOD PRESSURE
     Dosage: UNK, UNKNOWN
  12. CLONIDINE [Concomitant]
     Indication: HYPERTENSION
     Dosage: SEVERAL TIMES A DAY AS NEEDED
     Route: 065
  13. BEVACIZUMAB [Concomitant]
     Dosage: 10 MG/KG, EVERY 2 WEEKS
     Route: 065
  14. LISINOPRIL [Concomitant]
     Indication: HYPERTENSION
     Dosage: UNK, UNKNOWN
     Route: 065
  15. DEXAMETHASONE [Concomitant]
     Indication: HEMIPARESIS
  16. BEVACIZUMAB [Concomitant]
     Dosage: 5 MG/KG, EVERY 2 WEEKS
  17. ETOPOSIDE [Concomitant]
     Indication: PRODUCT USED FOR UNKNOWN INDICATION
     Dosage: 50 MG/M2, QD, DAILY
     Route: 048
  18. NIFEDIPINE [Concomitant]
     Indication: HYPERTENSION
     Dosage: UNK, UNKNOWN
     Route: 065

REACTIONS (3)
  - GLIOBLASTOMA [None]
  - DISEASE PROGRESSION [None]
  - THROMBOCYTOPENIA [None]
